FAERS Safety Report 14146957 (Version 9)
Quarter: 2022Q3

REPORT INFORMATION
  Report Type: Report from Study
  Country: DE (occurrence: DE)
  Receive Date: 20171101
  Receipt Date: 20220827
  Transmission Date: 20221026
  Serious: Yes (Death, Hospitalization)
  Sender: FDA-Public Use
  Company Number: PHHY2017DE159408

PATIENT
  Age: 36 Year
  Sex: Female
  Weight: 75 kg

DRUGS (4)
  1. GILENYA [Suspect]
     Active Substance: FINGOLIMOD HYDROCHLORIDE
     Indication: Multiple sclerosis
     Dosage: 0.5 MG, QD
     Route: 048
     Dates: start: 20151217
  2. CITALOPRAM [Concomitant]
     Active Substance: CITALOPRAM HYDROBROMIDE
     Indication: Depression
     Dosage: 40 MG, UNK
     Route: 065
     Dates: start: 20070223
  3. ETHINYL ESTRADIOL\LEVONORGESTREL [Concomitant]
     Active Substance: ETHINYL ESTRADIOL\LEVONORGESTREL
     Indication: Product used for unknown indication
     Dosage: 1 DOSAGE FORM, QD (0-0-1-0)
     Route: 048
  4. MIRABEGRON [Concomitant]
     Active Substance: MIRABEGRON
     Indication: Product used for unknown indication
     Dosage: 50 MG, QD (1-0-0-0)
     Route: 048

REACTIONS (6)
  - Generalised tonic-clonic seizure [Fatal]
  - Loss of consciousness [Fatal]
  - Muscle rigidity [Fatal]
  - Seizure [Fatal]
  - Astrocytoma [Fatal]
  - Anaplastic oligodendroglioma [Fatal]

NARRATIVE: CASE EVENT DATE: 20170917
